FAERS Safety Report 10397267 (Version 1)
Quarter: 2014Q3

REPORT INFORMATION
  Report Type: Spontaneous
  Country: US (occurrence: None)
  Receive Date: 20140819
  Receipt Date: 20140819
  Transmission Date: 20150326
  Serious: Yes (Other)
  Sender: FDA-Public Use
  Company Number: None

PATIENT
  Age: 54 Year
  Sex: Male
  Weight: 75.75 kg

DRUGS (1)
  1. OXYBUTYNIN [Suspect]
     Active Substance: OXYBUTYNIN
     Indication: HYPERHIDROSIS
     Dosage: 1 PILL ONCE DAILY TAKEN BY MOUTH
     Route: 048
     Dates: start: 20140815, end: 20140817

REACTIONS (11)
  - Asthenia [None]
  - Sweat gland disorder [None]
  - Chills [None]
  - Quality of life decreased [None]
  - Product substitution issue [None]
  - Insomnia [None]
  - Nausea [None]
  - Unable to afford prescribed medication [None]
  - Feeling abnormal [None]
  - Vomiting [None]
  - Impaired work ability [None]

NARRATIVE: CASE EVENT DATE: 20140817
